FAERS Safety Report 6671169-3 (Version None)
Quarter: 2010Q2

REPORT INFORMATION
  Report Type: 
  Country: None (occurrence: None)
  Receive Date: 20100407
  Receipt Date: 20100329
  Transmission Date: 20101027
  Serious: Yes (Hospitalization)
  Sender: FDA-Public Use
  Company Number: US-AMGEN-QUU402672

PATIENT
  Sex: Male

DRUGS (1)
  1. ENBREL [Suspect]
     Indication: PSORIATIC ARTHROPATHY
     Route: 058

REACTIONS (3)
  - PROSTATE CANCER [None]
  - PSORIATIC ARTHROPATHY [None]
  - SCROTAL SWELLING [None]
